FAERS Safety Report 19133110 (Version 2)
Quarter: 2021Q2

REPORT INFORMATION
  Report Type: Report from Study
  Country: None (occurrence: US)
  Receive Date: 20210413
  Receipt Date: 20210423
  Transmission Date: 20210717
  Serious: Yes (Hospitalization, Other)
  Sender: FDA-Public Use
  Company Number: US-ABBVIE-21K-163-3852855-00

PATIENT
  Age: 82 Year
  Sex: Female
  Weight: 63.56 kg

DRUGS (8)
  1. SYNTHROID [Suspect]
     Active Substance: LEVOTHYROXINE SODIUM
     Indication: HYPOTHYROIDISM
     Route: 048
     Dates: start: 1982
  2. SYNTHROID [Suspect]
     Active Substance: LEVOTHYROXINE SODIUM
     Dosage: ONE TABLET EVERY MONDAYS TO THURSDAYS
     Route: 048
     Dates: start: 198702
  3. SYNTHROID [Suspect]
     Active Substance: LEVOTHYROXINE SODIUM
     Dosage: ONE TABLET EVERY SATURDAYS AND SUNDAYS
     Route: 048
  4. ASPIRIN [ACETYLSALICYLIC ACID] [Concomitant]
     Active Substance: ASPIRIN
     Indication: PRODUCT USED FOR UNKNOWN INDICATION
  5. COVID?19 VACCINE NOS. [Concomitant]
     Active Substance: COVID-19 VACCINE NOS
     Dosage: PFIZER
     Route: 065
     Dates: start: 20210218, end: 20210218
  6. SYNTHROID [Suspect]
     Active Substance: LEVOTHYROXINE SODIUM
     Dosage: ONE TABLET EVERY OTHER FRIDAY
     Route: 048
  7. COVID?19 VACCINE NOS. [Concomitant]
     Active Substance: COVID-19 VACCINE NOS
     Indication: COVID-19 IMMUNISATION
     Dosage: PFIZER
     Route: 065
     Dates: start: 20210126, end: 20210126
  8. SYNTHROID [Suspect]
     Active Substance: LEVOTHYROXINE SODIUM
     Dosage: ONE TABLET EVERY OTHER FRIDAY
     Route: 048

REACTIONS (9)
  - Loss of consciousness [Recovered/Resolved]
  - Corneal dystrophy [Recovering/Resolving]
  - Retinal oedema [Recovering/Resolving]
  - Bradycardia [Unknown]
  - Presyncope [Unknown]
  - Administration site pain [Unknown]
  - Diverticulum [Recovered/Resolved]
  - Fall [Recovered/Resolved]
  - Concussion [Unknown]

NARRATIVE: CASE EVENT DATE: 1995
